FAERS Safety Report 17656916 (Version 2)
Quarter: 2020Q2

REPORT INFORMATION
  Report Type: Spontaneous
  Country: CA (occurrence: CA)
  Receive Date: 20200410
  Receipt Date: 20200428
  Transmission Date: 20200713
  Serious: Yes (Other)
  Sender: FDA-Public Use
  Company Number: CA-BRISTOL-MYERS SQUIBB COMPANY-BMS-2020-027230

PATIENT
  Sex: Female

DRUGS (2)
  1. WARFARIN SODIUM. [Suspect]
     Active Substance: WARFARIN SODIUM
     Indication: PRODUCT USED FOR UNKNOWN INDICATION
     Dosage: UNK
     Route: 065
  2. TRAZODONE [Suspect]
     Active Substance: TRAZODONE HYDROCHLORIDE
     Indication: PRODUCT USED FOR UNKNOWN INDICATION
     Dosage: UNK
     Route: 065

REACTIONS (14)
  - Insomnia [Unknown]
  - Circulatory collapse [Unknown]
  - Pain [Unknown]
  - Gait disturbance [Unknown]
  - Syncope [Unknown]
  - Dizziness [Unknown]
  - Muscular weakness [Unknown]
  - Nightmare [Unknown]
  - Headache [Unknown]
  - Asthenia [Unknown]
  - Haematemesis [Unknown]
  - Balance disorder [Unknown]
  - Injury [Unknown]
  - Paraesthesia [Unknown]
